FAERS Safety Report 6465113-1 (Version None)
Quarter: 2009Q4

REPORT INFORMATION
  Report Type: 
  Country: None (occurrence: None)
  Receive Date: 20091201
  Receipt Date: 20091120
  Transmission Date: 20100525
  Serious: Yes (Other)
  Sender: FDA-Public Use
  Company Number: US-MYLANLABS-2009S1020387

PATIENT
  Age: 86 Year
  Sex: Female

DRUGS (7)
  1. NITROFURANTOIN [Suspect]
     Route: 048
     Dates: start: 20091002, end: 20091004
  2. LEVOTHYROXINE [Concomitant]
  3. AMITIZA [Concomitant]
  4. DIGOXIN [Concomitant]
  5. HUMULIN /00646001/ [Concomitant]
  6. DIOVAN [Concomitant]
  7. HYDROCHLOROTHIAZIDE [Concomitant]

REACTIONS (1)
  - PARALYSIS [None]
